FAERS Safety Report 8524973-0 (Version None)
Quarter: 2012Q3

REPORT INFORMATION
  Report Type: 
  Country: None (occurrence: None)
  Receive Date: 20120720
  Receipt Date: 20120717
  Transmission Date: 20120928
  Serious: Yes (Death)
  Sender: FDA-Public Use
  Company Number: AU-ROCHE-1088241

PATIENT
  Sex: Female
  Weight: 61 kg

DRUGS (1)
  1. AVASTIN [Suspect]
     Indication: GLIOMA
     Dates: start: 20110324, end: 20120223

REACTIONS (1)
  - NEOPLASM PROGRESSION [None]
